FAERS Safety Report 9778847 (Version 1)
Quarter: 2013Q4

REPORT INFORMATION
  Report Type: Report from Study
  Country: CA (occurrence: CA)
  Receive Date: 20131223
  Receipt Date: 20131223
  Transmission Date: 20140711
  Serious: Yes (Hospitalization)
  Sender: FDA-Public Use
  Company Number: CA-JNJFOC-20131212457

PATIENT
  Age: 84 Year
  Sex: Female
  Weight: 38.56 kg

DRUGS (1)
  1. SIMPONI [Suspect]
     Indication: RHEUMATOID ARTHRITIS
     Route: 058
     Dates: start: 201004, end: 201212

REACTIONS (3)
  - Fall [Unknown]
  - Pelvic fracture [Unknown]
  - Staphylococcal infection [Unknown]
